FAERS Safety Report 5363024-6 (Version None)
Quarter: 2007Q2

REPORT INFORMATION
  Report Type: 
  Country: None (occurrence: None)
  Receive Date: 20070618
  Receipt Date: 20070607
  Transmission Date: 20071010
  Serious: Yes (Death)
  Sender: FDA-Public Use
  Company Number: 20073834

PATIENT
  Age: 16 Year
  Sex: Male

DRUGS (1)
  1. LIORESAL INTRATHECAL (BACLOFEN INJECTION) 2000.0 MCG/ML [Suspect]
     Indication: MUSCLE SPASTICITY
     Dosage: 0.208 MG, DAILY, INTRATHECAL
     Route: 037

REACTIONS (1)
  - DEATH [None]
